FAERS Safety Report 9553373 (Version 1)
Quarter: 2013Q3

REPORT INFORMATION
  Report Type: Spontaneous
  Country: US (occurrence: None)
  Receive Date: 20130913
  Receipt Date: 20130913
  Transmission Date: 20140515
  Serious: Yes (Other)
  Sender: FDA-Public Use
  Company Number: 1000043559

PATIENT
  Sex: Female

DRUGS (1)
  1. CELEXA [Suspect]

REACTIONS (1)
  - Withdrawal syndrome [None]
